FAERS Safety Report 6611815-3 (Version None)
Quarter: 2010Q1

REPORT INFORMATION
  Report Type: 
  Country: None (occurrence: None)
  Receive Date: 20100303
  Receipt Date: 20100219
  Transmission Date: 20100710
  Serious: Yes (Death)
  Sender: FDA-Public Use
  Company Number: JP-WYE-H12869210

PATIENT
  Age: 77 Year
  Sex: Male

DRUGS (9)
  1. ANCARON [Suspect]
     Indication: HYPERTROPHIC CARDIOMYOPATHY
     Route: 048
     Dates: start: 20091222, end: 20091222
  2. ANCARON [Suspect]
     Indication: VENTRICULAR TACHYCARDIA
  3. GENINAX [Concomitant]
     Dosage: ^200 MG 2 T/1M^
     Route: 065
     Dates: start: 20091218, end: 20091223
  4. LIDOCAINE [Concomitant]
     Dosage: ^1% DRIP INFUSION 6 ML/H^
     Route: 042
     Dates: start: 20091218
  5. INOVAN [Concomitant]
     Dosage: 150 MG 2 ML/H
     Route: 042
     Dates: start: 20091218
  6. ARTIST [Concomitant]
     Dosage: ^2.5 MG, 0.5 T AT MORNING^
     Route: 065
     Dates: start: 20091219, end: 20091223
  7. LEBENIN [Concomitant]
     Dosage: DOSE UNKNOWN
     Route: 065
     Dates: start: 20091219, end: 20091223
  8. ZITHROMAX [Concomitant]
     Dosage: ^2 G ON 2 HOURS AFTER DINNER^
     Route: 065
     Dates: start: 20091218, end: 20091218
  9. LASIX [Concomitant]
     Dosage: ^20 MG 1A^
     Route: 042
     Dates: start: 20091219, end: 20091223

REACTIONS (2)
  - HEPATITIS FULMINANT [None]
  - MULTI-ORGAN FAILURE [None]
